FAERS Safety Report 19896694 (Version 2)
Quarter: 2021Q4

REPORT INFORMATION
  Report Type: Report from Study
  Country: US (occurrence: US)
  Receive Date: 20210929
  Receipt Date: 20211012
  Transmission Date: 20220304
  Serious: Yes (Other)
  Sender: FDA-Public Use
  Company Number: US-KOREA IPSEN PHARMA-2021-22851

PATIENT

DRUGS (2)
  1. BOTULINUM TOXIN TYPE A [Suspect]
     Active Substance: BOTULINUM TOXIN TYPE A
     Indication: Migraine
     Dosage: DOSE NOT REPORTED.
     Route: 065
  2. RIMEGEPANT [Suspect]
     Active Substance: RIMEGEPANT
     Indication: Migraine
     Dosage: ENROLLMENT GRP: 75 MG ORALLY AS NEEDED UPTO ONCE DAILY, SCHEDULED DOSING GRP: 75 MG EVERY OTHER DAY
     Route: 048

REACTIONS (10)
  - Urinary tract infection [Unknown]
  - Upper respiratory tract infection [Unknown]
  - Sinusitis [Unknown]
  - Nasopharyngitis [Unknown]
  - Back pain [Unknown]
  - Influenza [Unknown]
  - Bronchitis [Unknown]
  - Nausea [Unknown]
  - Dizziness [Unknown]
  - Arthralgia [Unknown]
